FAERS Safety Report 15561280 (Version 2)
Quarter: 2019Q1

REPORT INFORMATION
  Report Type: Spontaneous
  Country: US (occurrence: US)
  Receive Date: 20181029
  Receipt Date: 20190110
  Transmission Date: 20190417
  Serious: No
  Sender: FDA-Public Use
  Company Number: US-AMGEN-USASP2018150072

PATIENT
  Age: 68 Year
  Sex: Female

DRUGS (6)
  1. AIMOVIG [Suspect]
     Active Substance: ERENUMAB-AOOE
     Indication: MIGRAINE
     Dosage: 70 MG, QMO
     Route: 065
     Dates: start: 20180904
  2. MORPHINE [Concomitant]
     Active Substance: MORPHINE
     Indication: HEADACHE
     Dosage: UNK, DAILY
  3. MORPHINE [Concomitant]
     Active Substance: MORPHINE
     Indication: NECK PAIN
  4. AIMOVIG [Suspect]
     Active Substance: ERENUMAB-AOOE
     Dosage: 70 MG, QMO
     Route: 065
  5. CYCLOBENZAPRINE. [Concomitant]
     Active Substance: CYCLOBENZAPRINE
     Indication: HEADACHE
  6. CYCLOBENZAPRINE. [Concomitant]
     Active Substance: CYCLOBENZAPRINE
     Indication: NECK PAIN

REACTIONS (1)
  - Therapy non-responder [Unknown]

NARRATIVE: CASE EVENT DATE: 2018
